FAERS Safety Report 20428651 (Version 5)
Quarter: 2024Q1

REPORT INFORMATION
  Report Type: Report from Study
  Country: DE (occurrence: DE)
  Receive Date: 20220204
  Receipt Date: 20240110
  Transmission Date: 20240410
  Serious: Yes (Hospitalization, Other)
  Sender: FDA-Public Use
  Company Number: DE-CELLTRION INC.-2022DE000871

PATIENT

DRUGS (20)
  1. INFLIXIMAB-DYYB [Suspect]
     Active Substance: INFLIXIMAB-DYYB
     Indication: Axial spondyloarthritis
     Dosage: 5 MILLIGRAM, EVERY 1 WEEKS/5 MG, WEEKLY
     Route: 048
     Dates: start: 20190404
  2. INFLIXIMAB-DYYB [Suspect]
     Active Substance: INFLIXIMAB-DYYB
     Indication: Ankylosing spondylitis
     Dosage: 5 MILLIGRAM, EVERY 1 WEEKS/5MG, WEEKLY
     Route: 048
     Dates: start: 20120101, end: 20181105
  3. INFLIXIMAB-DYYB [Suspect]
     Active Substance: INFLIXIMAB-DYYB
     Dosage: 120 MG, EVERY 2 WEEKS
     Route: 065
     Dates: start: 20210915, end: 20210930
  4. INFLIXIMAB-DYYB [Suspect]
     Active Substance: INFLIXIMAB-DYYB
     Dosage: UNK
     Dates: start: 20210915
  5. INFLIXIMAB-DYYB [Suspect]
     Active Substance: INFLIXIMAB-DYYB
     Dosage: 120 MG, EVERY 2 WEEKS
     Route: 065
     Dates: start: 20211015, end: 20220710
  6. SIMPONI [Suspect]
     Active Substance: GOLIMUMAB
     Indication: Ankylosing spondylitis
     Dosage: 50 MG, EVERY 4 WEEKS
     Route: 058
     Dates: start: 20180226, end: 20191010
  7. SIMPONI [Suspect]
     Active Substance: GOLIMUMAB
     Indication: Axial spondyloarthritis
     Dosage: 50 MG, EVERY 6 WEEKS (THERAPY DURATION: 2.822 YEARS)
     Route: 058
     Dates: start: 20191128
  8. SIMPONI [Suspect]
     Active Substance: GOLIMUMAB
     Dosage: 50 MG, EVERY 4 WEEKS
     Route: 058
     Dates: start: 20200502, end: 20210515
  9. SIMPONI [Suspect]
     Active Substance: GOLIMUMAB
     Dosage: 100 MG, EVERY 4 WEEKS
     Route: 058
     Dates: start: 20210615, end: 20210815
  10. CELECOXIB [Suspect]
     Active Substance: CELECOXIB
     Indication: Ankylosing spondylitis
     Dosage: 800 MG, 1X/WEEK, GEL FORMULATION
     Route: 065
     Dates: start: 20190101, end: 20190501
  11. CELECOXIB [Suspect]
     Active Substance: CELECOXIB
     Indication: Axial spondyloarthritis
     Dosage: 200 MG, 7 DAYS PER WEEK, GEL FORMULATION
     Route: 065
     Dates: start: 20170918, end: 20181105
  12. CELECOXIB [Suspect]
     Active Substance: CELECOXIB
     Dosage: 200 MG, 7 DAYS PER WEEK, GEL FORMULATION
     Route: 065
     Dates: start: 20191107, end: 20201215
  13. NAPROXEN [Suspect]
     Active Substance: NAPROXEN
     Indication: Axial spondyloarthritis
     Dosage: 500 MG QD- 7 DAYS PER WEEK
     Dates: start: 20210608, end: 20220715
  14. METHOTREXATE [Suspect]
     Active Substance: METHOTREXATE
     Indication: Axial spondyloarthritis
     Dosage: 10 MG
     Route: 048
     Dates: start: 20120101
  15. METHOTREXATE [Suspect]
     Active Substance: METHOTREXATE
     Dosage: 5 MG, 1/WEEK
     Route: 048
     Dates: start: 20120101, end: 20181115
  16. METHOTREXATE [Suspect]
     Active Substance: METHOTREXATE
     Dosage: 5 MG, 1/WEEK
     Route: 048
     Dates: start: 20190404
  17. METHOTREXATE [Suspect]
     Active Substance: METHOTREXATE
     Dosage: 5 MG, 1/WEEK
     Route: 048
     Dates: start: 20210915
  18. INFLECTRA [Suspect]
     Active Substance: INFLIXIMAB-DYYB
     Indication: Axial spondyloarthritis
     Dosage: 400 MG
     Route: 065
     Dates: start: 20220807
  19. INFLECTRA [Suspect]
     Active Substance: INFLIXIMAB-DYYB
     Indication: Ankylosing spondylitis
  20. ACEMETACIN [Concomitant]
     Active Substance: ACEMETACIN
     Dosage: 180 MG
     Route: 065
     Dates: start: 20181105, end: 20181108

REACTIONS (21)
  - Osteochondrosis [Recovered/Resolved]
  - Axial spondyloarthritis [Recovered/Resolved]
  - Intervertebral disc protrusion [Recovered/Resolved]
  - Postoperative adhesion [Recovered/Resolved]
  - Hypertonic bladder [Unknown]
  - Rotator cuff syndrome [Recovered/Resolved]
  - Residual urine volume increased [Recovered/Resolved]
  - Diagnostic procedure [Recovered/Resolved]
  - Multiple sclerosis [Unknown]
  - Back pain [Recovered/Resolved]
  - Off label use [Unknown]
  - Product use issue [Unknown]
  - Ovarian cyst [Unknown]
  - Gastritis [Unknown]
  - Functional gastrointestinal disorder [Unknown]
  - Upper respiratory tract infection [Unknown]
  - Urinary tract infection [Unknown]
  - Laryngitis [Unknown]
  - Rash [Unknown]
  - Off label use [Unknown]
  - Intentional product use issue [Unknown]

NARRATIVE: CASE EVENT DATE: 20190304
